FAERS Safety Report 12692110 (Version 1)
Quarter: 2016Q3

REPORT INFORMATION
  Report Type: Spontaneous
  Country: US (occurrence: US)
  Receive Date: 20160827
  Receipt Date: 20160827
  Transmission Date: 20161109
  Serious: Yes (Other)
  Sender: FDA-Public Use
  Company Number: US-B.I. PHARMACEUTICALS,INC./RIDGEFIELD-2016-BI-48888BP

PATIENT
  Age: 90 Year
  Sex: Male

DRUGS (1)
  1. DULCOLAX (BISACODYL) [Suspect]
     Active Substance: BISACODYL
     Indication: PROSTATE EXAMINATION
     Route: 048

REACTIONS (3)
  - Drug ineffective [Unknown]
  - Spinal disorder [Unknown]
  - Off label use [Unknown]
